FAERS Safety Report 7237984-2 (Version None)
Quarter: 2011Q1

REPORT INFORMATION
  Report Type: 
  Country: None (occurrence: None)
  Receive Date: 20110121
  Receipt Date: 20110115
  Transmission Date: 20110831
  Serious: Yes (Hospitalization)
  Sender: FDA-Public Use
  Company Number: A0763961B

PATIENT
  Sex: Male
  Weight: 55 kg

DRUGS (3)
  1. LAPATINIB [Suspect]
     Dosage: 1500MG PER DAY
     Route: 048
     Dates: start: 20081205
  2. RADIOTHERAPY [Suspect]
     Dosage: 10GY PER DAY
     Route: 061
     Dates: start: 20081209, end: 20081215
  3. CISPLATIN [Suspect]
     Dosage: 100MGM2 CYCLIC
     Route: 042
     Dates: start: 20081209

REACTIONS (3)
  - STOMATITIS [None]
  - ASTHENIA [None]
  - STOMATITIS HAEMORRHAGIC [None]
